FAERS Safety Report 7688130-2 (Version None)
Quarter: 2011Q3

REPORT INFORMATION
  Report Type: 
  Country: None (occurrence: None)
  Receive Date: 20110817
  Receipt Date: 20110804
  Transmission Date: 20111222
  Serious: Yes (Hospitalization, Other)
  Sender: FDA-Public Use
  Company Number: CA-ELI_LILLY_AND_COMPANY-CA201108001505

PATIENT
  Sex: Female

DRUGS (1)
  1. ZYPREXA [Suspect]
     Dosage: 2.5 MG, UNK

REACTIONS (11)
  - HAEMORRHAGIC STROKE [None]
  - PANCREATIC DISORDER [None]
  - HEMIPARESIS [None]
  - NEUROPATHY PERIPHERAL [None]
  - RENAL FAILURE CHRONIC [None]
  - MULTI-ORGAN FAILURE [None]
  - TYPE 1 DIABETES MELLITUS [None]
  - COGNITIVE DISORDER [None]
  - CELLULITIS [None]
  - DECREASED APPETITE [None]
  - DYSPHAGIA [None]
